FAERS Safety Report 4401347-5 (Version None)
Quarter: 2004Q3

REPORT INFORMATION
  Report Type: 
  Country: None (occurrence: None)
  Receive Date: 20040907
  Receipt Date: 20040322
  Transmission Date: 20050211
  Serious: No
  Sender: FDA-Public Use
  Company Number: US-BRISTOL-MYERS SQUIBB COMPANY-12538898

PATIENT
  Age: 83 Year
  Sex: Female
  Weight: 50 kg

DRUGS (4)
  1. COUMADIN [Suspect]
     Indication: PULMONARY EMBOLISM
     Route: 048
     Dates: start: 20040101
  2. PAXIL [Concomitant]
  3. VITAMIN D [Concomitant]
  4. CALCIUM [Concomitant]

REACTIONS (1)
  - ALOPECIA [None]
